FAERS Safety Report 9525812 (Version 4)
Quarter: 2014Q1

REPORT INFORMATION
  Report Type: Spontaneous
  Country: US (occurrence: US)
  Receive Date: 20130916
  Receipt Date: 20140204
  Transmission Date: 20141002
  Serious: Yes (Other)
  Sender: FDA-Public Use
  Company Number: US-PURDUE-USA-2013-0106356

PATIENT
  Sex: Female

DRUGS (7)
  1. BUTRANS [Suspect]
     Indication: NECK PAIN
     Dosage: 10 MCG/HR, WEEKLY
     Route: 062
     Dates: start: 201307
  2. LORTAB /00607101/ [Suspect]
     Indication: BREAKTHROUGH PAIN
     Dosage: 10 MG, UNK
  3. LORTAB /00607101/ [Suspect]
     Dosage: 7.5 MG, UNK
  4. FLEXERIL                           /00428402/ [Concomitant]
     Indication: PAIN
     Dosage: UNKNOWN
  5. NAPROXEN [Concomitant]
     Indication: PAIN
     Dosage: UNKNOWN
  6. TRAMADOL COMPOUND CREAM [Concomitant]
     Indication: PAIN
     Dosage: 1-2 PUMPS, 1.5-3 GN, 3-4 TIMES PRN DAILY
     Route: 061
  7. TRANXENE [Concomitant]
     Indication: PRODUCT USED FOR UNKNOWN INDICATION
     Dosage: UNKNOWN

REACTIONS (14)
  - Surgery [Unknown]
  - Dysphonia [Unknown]
  - Chest discomfort [Unknown]
  - Mental impairment [Unknown]
  - Dysmenorrhoea [Unknown]
  - Unevaluable event [Unknown]
  - Pain [Unknown]
  - Drug ineffective [Not Recovered/Not Resolved]
  - Dyspnoea [Unknown]
  - Insomnia [Unknown]
  - Anxiety [Unknown]
  - Product quality issue [Unknown]
  - Asthenia [Unknown]
  - Fatigue [Unknown]
